FAERS Safety Report 5700022-4 (Version None)
Quarter: 2008Q2

REPORT INFORMATION
  Report Type: 
  Country: None (occurrence: None)
  Receive Date: 20080410
  Receipt Date: 20080402
  Transmission Date: 20081010
  Serious: Yes (Other)
  Sender: FDA-Public Use
  Company Number: US-ASTRAZENECA-2008UW06583

PATIENT
  Age: 24196 Day
  Sex: Male
  Weight: 80.9 kg

DRUGS (7)
  1. TOPROL-XL [Suspect]
     Route: 048
     Dates: start: 20070626, end: 20070901
  2. TOPROL-XL [Suspect]
     Route: 048
     Dates: start: 20070924, end: 20071005
  3. TOPAMAX [Suspect]
     Indication: CONVULSION
     Dates: start: 20070624
  4. TOPAMAX [Suspect]
     Dates: start: 20070901
  5. TOPAMAX [Suspect]
     Dates: start: 20071004
  6. ACIPHEX [Concomitant]
     Indication: GASTRIC DISORDER
  7. TAMSULOSIN HCL [Concomitant]
     Indication: PROSTATIC DISORDER

REACTIONS (7)
  - ASTHENIA [None]
  - CHEST DISCOMFORT [None]
  - CONVULSION [None]
  - FEELING ABNORMAL [None]
  - HEART RATE DECREASED [None]
  - HEART RATE IRREGULAR [None]
  - MEDICATION ERROR [None]
